FAERS Safety Report 15074448 (Version 1)
Quarter: 2018Q2

REPORT INFORMATION
  Report Type: Spontaneous
  Country: FR (occurrence: FR)
  Receive Date: 20180627
  Receipt Date: 20180627
  Transmission Date: 20180711
  Serious: Yes (Death, Other)
  Sender: FDA-Public Use
  Company Number: FR-BAYER-2018-115265

PATIENT
  Age: 61 Year
  Sex: Male

DRUGS (4)
  1. REGORAFENIB. [Suspect]
     Active Substance: REGORAFENIB
     Indication: COLORECTAL CANCER METASTATIC
     Dosage: 120 MG, QD
  2. TIPIRACIL [Concomitant]
     Active Substance: TIPIRACIL
  3. REGORAFENIB. [Suspect]
     Active Substance: REGORAFENIB
     Indication: COLORECTAL CANCER METASTATIC
     Dosage: 160 MG, QD
     Dates: start: 201703
  4. TRIFLURIDINE. [Concomitant]
     Active Substance: TRIFLURIDINE

REACTIONS (9)
  - Palmar-plantar erythrodysaesthesia syndrome [None]
  - Metastases to biliary tract [None]
  - Lung disorder [None]
  - Ascites [None]
  - Abdominal lymphadenopathy [None]
  - Soft tissue disorder [None]
  - Hepatic lesion [None]
  - Death [Fatal]
  - Carcinoembryonic antigen increased [None]
